FAERS Safety Report 6416091-2 (Version None)
Quarter: 2009Q4

REPORT INFORMATION
  Report Type: 
  Country: None (occurrence: None)
  Receive Date: 20091027
  Receipt Date: 20091019
  Transmission Date: 20100525
  Serious: Yes (Hospitalization, Other)
  Sender: FDA-Public Use
  Company Number: US-NOVOPROD-292945

PATIENT
  Sex: Male
  Weight: 64.853 kg

DRUGS (8)
  1. LEVEMIR [Suspect]
     Indication: TYPE 2 DIABETES MELLITUS
     Dosage: 22 IU, QD
     Route: 058
     Dates: start: 20080201
  2. NOVOLOG [Suspect]
     Indication: TYPE 2 DIABETES MELLITUS
     Dosage: 7U BREAKFAST, 14U LUNCH, 10U DINNER, QD
     Route: 058
     Dates: start: 20080201
  3. HUMULIN                            /00646001/ [Concomitant]
     Indication: TYPE 2 DIABETES MELLITUS
     Route: 058
  4. ASPIRIN [Concomitant]
     Indication: DRUG USE FOR UNKNOWN INDICATION
     Dosage: 81 MG, QD
     Route: 048
  5. DIOVAN                             /01319601/ [Concomitant]
     Indication: BLOOD PRESSURE INCREASED
     Route: 048
  6. MULTIVITAMIN                       /00097801/ [Concomitant]
     Indication: DRUG USE FOR UNKNOWN INDICATION
     Route: 048
  7. LOVAZA [Concomitant]
     Indication: DRUG USE FOR UNKNOWN INDICATION
     Route: 048
  8. CALCIUM [Concomitant]
     Indication: DRUG USE FOR UNKNOWN INDICATION
     Route: 048

REACTIONS (4)
  - BLOOD GLUCOSE INCREASED [None]
  - CHEST PAIN [None]
  - NAUSEA [None]
  - VOMITING [None]
